FAERS Safety Report 4994130-3 (Version None)
Quarter: 2006Q2

REPORT INFORMATION
  Report Type: 
  Country: None (occurrence: None)
  Receive Date: 20060505
  Receipt Date: 20060426
  Transmission Date: 20061013
  Serious: Yes (Hospitalization)
  Sender: FDA-Public Use
  Company Number: JP-SANOFI-SYNTHELABO-A01200603266

PATIENT
  Age: 78 Year
  Sex: Female

DRUGS (3)
  1. MYSLEE [Suspect]
     Dosage: 5 MG
     Route: 048
     Dates: start: 20060425, end: 20060425
  2. HALCION [Concomitant]
     Dosage: UNK
     Route: 048
     Dates: end: 20060424
  3. NITOROL R [Concomitant]
     Dosage: UNK
     Route: 048
     Dates: end: 20060425

REACTIONS (3)
  - CARDIO-RESPIRATORY ARREST [None]
  - INFARCTION [None]
  - RESPIRATORY DEPRESSION [None]
